FAERS Safety Report 9802982 (Version 2)
Quarter: 2014Q1

REPORT INFORMATION
  Report Type: Spontaneous
  Country: US (occurrence: US)
  Receive Date: 20140108
  Receipt Date: 20140211
  Transmission Date: 20141002
  Serious: No
  Sender: FDA-Public Use
  Company Number: US-009507513-1401USA002210

PATIENT
  Age: 66 Year
  Sex: Female
  Weight: 87.75 kg

DRUGS (4)
  1. ZETIA [Suspect]
     Indication: HYPERLIPIDAEMIA
     Dosage: UNK, QPM
     Route: 048
     Dates: start: 20131206, end: 20140106
  2. METOPROLOL [Concomitant]
     Indication: BLOOD PRESSURE
     Dosage: UNK,25 MG TABLET TAKEN ONE TABLET BY MOUTH BID
     Route: 048
  3. TYLENOL [Concomitant]
     Dosage: UNK, STRENGTH 25 TO 500 MG AS NEEDED
     Route: 048
  4. XANAX [Concomitant]
     Dosage: UNK, AS DIRECTED
     Route: 048

REACTIONS (5)
  - Insomnia [Unknown]
  - Abdominal pain upper [Unknown]
  - Nausea [Recovered/Resolved]
  - Diarrhoea [Recovered/Resolved]
  - Asthenia [Recovered/Resolved]
